FAERS Safety Report 4688565-6 (Version None)
Quarter: 2005Q2

REPORT INFORMATION
  Report Type: 
  Country: None (occurrence: None)
  Receive Date: 20050609
  Receipt Date: 20050530
  Transmission Date: 20051028
  Serious: Yes (Hospitalization, Other)
  Sender: FDA-Public Use
  Company Number: 2005-05-2108

PATIENT
  Age: 41 Year
  Sex: Male

DRUGS (1)
  1. RIBAVIRIN [Suspect]
     Indication: HEPATITIS C
     Dosage: ORAL
     Route: 048

REACTIONS (1)
  - PSYCHOTIC DISORDER [None]
